FAERS Safety Report 9068384 (Version 1)
Quarter: 2013Q1

REPORT INFORMATION
  Report Type: Spontaneous
  Country: US (occurrence: None)
  Receive Date: 20130212
  Receipt Date: 20130212
  Transmission Date: 20140127
  Serious: Yes (Other)
  Sender: FDA-Public Use
  Company Number: None

PATIENT
  Age: 70 Year
  Sex: Female
  Weight: 73.48 kg

DRUGS (1)
  1. MINOCYCLINE 100 MG WATSON LABS [Suspect]
     Indication: POSTOPERATIVE CARE
     Dosage: 1  2/DAY  PO?DURATION: 3 DAYS, 5 DOSES
     Route: 048
     Dates: start: 20130207, end: 20130209

REACTIONS (2)
  - Dizziness [None]
  - Dizziness [None]
